FAERS Safety Report 18323907 (Version 5)
Quarter: 2022Q3

REPORT INFORMATION
  Report Type: Spontaneous
  Country: FR (occurrence: None)
  Receive Date: 20200929
  Receipt Date: 20220915
  Transmission Date: 20221027
  Serious: Yes (Other)
  Sender: FDA-Public Use
  Company Number: FR-MERCK HEALTHCARE KGAA-E2B_90080288

PATIENT
  Sex: Female

DRUGS (2)
  1. LEVOTHYROXINE [Suspect]
     Active Substance: LEVOTHYROXINE
     Indication: Product used for unknown indication
     Dates: start: 2017
  2. LEVOTHYROXINE [Suspect]
     Active Substance: LEVOTHYROXINE
     Dates: start: 2017

REACTIONS (17)
  - Loss of consciousness [Recovering/Resolving]
  - Fluid retention [Recovering/Resolving]
  - Generalised oedema [Recovering/Resolving]
  - Weight increased [Recovering/Resolving]
  - Eye irritation [Recovering/Resolving]
  - Burning sensation [Recovering/Resolving]
  - Dyspepsia [Not Recovered/Not Resolved]
  - Neoplasm malignant [Unknown]
  - Toxicity to various agents [Unknown]
  - Alopecia [Recovering/Resolving]
  - Gait disturbance [Unknown]
  - Accident [Unknown]
  - Dizziness [Unknown]
  - Abdominal distension [Unknown]
  - Swelling face [Unknown]
  - Hyperphagia [Recovering/Resolving]
  - Insomnia [Recovering/Resolving]
